FAERS Safety Report 25182311 (Version 1)
Quarter: 2025Q2

REPORT INFORMATION
  Report Type: Spontaneous
  Country: US (occurrence: US)
  Receive Date: 20250410
  Receipt Date: 20250410
  Transmission Date: 20250716
  Serious: No
  Sender: KINIKSA PHARMACEUTICALS
  Company Number: US-Kiniksa Pharmaceuticals Ltd.-2024KPU001172

PATIENT
  Age: 62 Year
  Sex: Female

DRUGS (1)
  1. ARCALYST [Suspect]
     Active Substance: RILONACEPT
     Indication: Pericarditis
     Route: 058
     Dates: start: 20240416

REACTIONS (7)
  - Dysphonia [Unknown]
  - Weight decreased [Unknown]
  - Blood cholesterol increased [Unknown]
  - Mobility decreased [Unknown]
  - Arthralgia [Unknown]
  - Rhinorrhoea [Unknown]
  - Injection site reaction [Unknown]

NARRATIVE: CASE EVENT DATE: 20240416
